FAERS Safety Report 9349460 (Version 2)
Quarter: 2013Q2

REPORT INFORMATION
  Report Type: Spontaneous
  Country: DE (occurrence: None)
  Receive Date: 20130611
  Receipt Date: 20130611
  Transmission Date: 20140414
  Serious: Yes (Hospitalization)
  Sender: FDA-Public Use
  Company Number: PAN-2013-000069

PATIENT
  Age: 69 Year
  Sex: Male

DRUGS (5)
  1. TACROLIMUS [Suspect]
     Indication: IMMUNOSUPPRESSION
  2. MYCOPHENOLATE MOFETIL [Suspect]
     Indication: IMMUNOSUPPRESSION
  3. AMLODIPINE (AMLODIPINE) [Concomitant]
  4. METOPROLOL (METROPROLOL) [Concomitant]
  5. PANTOPRAZOLE (PANTOPRAZOLE) [Concomitant]

REACTIONS (4)
  - Henoch-Schonlein purpura [None]
  - IgA nephropathy [None]
  - Disease recurrence [None]
  - Leukocytoclastic vasculitis [None]
